FAERS Safety Report 6134312-0 (Version None)
Quarter: 2009Q1

REPORT INFORMATION
  Report Type: 
  Country: None (occurrence: None)
  Receive Date: 20090325
  Receipt Date: 20090311
  Transmission Date: 20090719
  Serious: Yes (Death)
  Sender: FDA-Public Use
  Company Number: 2009182153

PATIENT
  Age: 78 Year
  Sex: Male

DRUGS (8)
  1. FRAGMIN [Suspect]
     Indication: THROMBOSIS PROPHYLAXIS
     Dosage: 5000 IU
  2. ASPIRIN [Suspect]
     Dosage: 100 MG, 1X/DAY
     Dates: start: 19950101
  3. PANADOL (PARACETAMOL) TABLET [Suspect]
     Indication: PAIN
     Dosage: FREQUENCY: AS NECESSARY;
  4. CASODEX [Concomitant]
  5. BISOPROLOL FUMARATE [Concomitant]
  6. EXETIMIBE/SIMVASTATIN (EZETIMIBE, SIMVASTATIN) [Concomitant]
  7. PANTOPRAZOLE SODIUM [Concomitant]
  8. LESCOL [Concomitant]

REACTIONS (1)
  - GASTROINTESTINAL HAEMORRHAGE [None]
